FAERS Safety Report 21130287 (Version 1)
Quarter: 2022Q3

REPORT INFORMATION
  Report Type: Spontaneous
  Country: US (occurrence: US)
  Receive Date: 20220726
  Receipt Date: 20220726
  Transmission Date: 20221027
  Serious: No
  Sender: FDA-Public Use
  Company Number: US-BIOGEN-2022BI01108128

PATIENT
  Sex: Female

DRUGS (11)
  1. VUMERITY [Suspect]
     Active Substance: DIROXIMEL FUMARATE
     Indication: Multiple sclerosis
     Route: 050
     Dates: start: 20211021, end: 20220722
  2. ELIQUIS [Concomitant]
     Active Substance: APIXABAN
     Route: 050
  3. JARDIANCE [Concomitant]
     Active Substance: EMPAGLIFLOZIN
     Route: 050
  4. LISINOPRIL [Concomitant]
     Active Substance: LISINOPRIL
     Route: 050
  5. TRAMADOL HCL [Concomitant]
     Active Substance: TRAMADOL HYDROCHLORIDE
     Route: 050
  6. ATORVASTATIN CALCIUM [Concomitant]
     Active Substance: ATORVASTATIN CALCIUM
     Route: 050
  7. GABAPENTIN [Concomitant]
     Active Substance: GABAPENTIN
     Route: 050
  8. HUMALOG [Concomitant]
     Active Substance: INSULIN LISPRO
     Route: 050
  9. BIOTIN [Concomitant]
     Active Substance: BIOTIN
     Route: 050
  10. OXYCODONE HYDROCHLORIDE [Concomitant]
     Active Substance: OXYCODONE HYDROCHLORIDE
     Route: 050
  11. METHIMAZOLE [Concomitant]
     Active Substance: METHIMAZOLE
     Route: 050

REACTIONS (3)
  - Constipation [Not Recovered/Not Resolved]
  - Gastrointestinal disorder [Unknown]
  - Diarrhoea [Not Recovered/Not Resolved]
